FAERS Safety Report 4945064-1 (Version None)
Quarter: 2006Q1

REPORT INFORMATION
  Report Type: 
  Country: None (occurrence: None)
  Receive Date: 20060117
  Receipt Date: 20050329
  Transmission Date: 20060701
  Serious: Yes (Hospitalization)
  Sender: FDA-Public Use
  Company Number: FEI2005-0592

PATIENT
  Age: 23 Year
  Sex: Female

DRUGS (1)
  1. INTRAUTERINE COPPER CONTRACEPTIVE [Suspect]
     Indication: CONTRACEPTION
     Dosage: INTRA-UTERINE
     Route: 015
     Dates: start: 20050216, end: 20050321

REACTIONS (4)
  - ABDOMINAL PAIN [None]
  - IUCD COMPLICATION [None]
  - IUD MIGRATION [None]
  - UTERINE PERFORATION [None]
